FAERS Safety Report 9196714 (Version 3)
Quarter: 2013Q3

REPORT INFORMATION
  Report Type: Spontaneous
  Country: US (occurrence: US)
  Receive Date: 20130328
  Receipt Date: 20130718
  Transmission Date: 20140515
  Serious: Yes (Other)
  Sender: FDA-Public Use
  Company Number: US-AMGEN-USASP2013018987

PATIENT
  Age: 66 Year
  Sex: Female
  Weight: 59.86 kg

DRUGS (3)
  1. XGEVA [Suspect]
     Indication: BONE CANCER
     Dosage: 120 MG, QMO
     Route: 058
     Dates: start: 20120705, end: 20120927
  2. CARBOPLATIN [Concomitant]
  3. TAXOTERE [Concomitant]

REACTIONS (1)
  - Osteonecrosis of jaw [Not Recovered/Not Resolved]
